FAERS Safety Report 9953532 (Version 1)
Quarter: 2014Q1

REPORT INFORMATION
  Report Type: Spontaneous
  Country: US (occurrence: US)
  Receive Date: 20140304
  Receipt Date: 20140304
  Transmission Date: 20141002
  Serious: Yes (Other)
  Sender: FDA-Public Use
  Company Number: US-JNJFOC-20140215919

PATIENT
  Sex: Female
  Weight: 77.57 kg

DRUGS (17)
  1. INVOKANA [Suspect]
     Indication: DIABETES MELLITUS
     Route: 048
     Dates: start: 201310, end: 201401
  2. SYNTHROID [Concomitant]
  3. SYNTHROID [Concomitant]
  4. SYNTHROID [Concomitant]
  5. SYNTHROID [Concomitant]
  6. PLAVIX [Concomitant]
     Indication: CARDIAC DISORDER
     Route: 048
     Dates: start: 2008
  7. XANAX [Concomitant]
     Indication: SLEEP DISORDER
     Route: 048
     Dates: start: 2004
  8. FAMOTIDINE [Concomitant]
     Route: 048
     Dates: start: 2011
  9. PERCOCET [Concomitant]
     Indication: PAIN
     Route: 048
     Dates: start: 2002
  10. NITROSTAT [Concomitant]
     Indication: CHEST PAIN
     Dosage: STARTED 30-40 YRS AGO
     Route: 060
  11. GLIMEPIRIDE [Concomitant]
     Indication: DIABETES MELLITUS
     Dosage: 3 MG IN A.M, 2 MG IN AFTERNOON, AND 1-2 MG AS NEEDED
     Dates: start: 1999
  12. MECLIZINE [Concomitant]
     Indication: BALANCE DISORDER
     Route: 048
     Dates: start: 2012
  13. LISINOPRIL [Concomitant]
     Route: 048
     Dates: start: 2010
  14. PANCRELIPASE [Concomitant]
     Dosage: 3 PILLS (4500-25000 UNITS) BEFORE EACH MEAL AND 2 PILLS (4500-25000 UNITS) BEFORE EACH SNACK
     Route: 048
     Dates: start: 1996
  15. ASTELIN [Concomitant]
     Dosage: STARTED 4-5 YRS AGO
     Route: 045
  16. GABAPENTIN [Concomitant]
     Indication: NEUROPATHY PERIPHERAL
     Route: 048
     Dates: start: 2012
  17. NORVASC [Concomitant]
     Route: 048
     Dates: start: 2013

REACTIONS (4)
  - Blood thyroid stimulating hormone decreased [Recovered/Resolved]
  - Abnormal loss of weight [Recovering/Resolving]
  - Eating disorder [Recovered/Resolved]
  - Hypersomnia [Recovered/Resolved]
